FAERS Safety Report 13441342 (Version 1)
Quarter: 2017Q2

REPORT INFORMATION
  Report Type: Spontaneous
  Country: FI (occurrence: FI)
  Receive Date: 20170413
  Receipt Date: 20170413
  Transmission Date: 20170830
  Serious: Yes (Hospitalization, Other)
  Sender: FDA-Public Use
  Company Number: FI-ROCHE-1920103

PATIENT
  Age: 59 Year
  Sex: Male

DRUGS (3)
  1. GAZYVARO [Suspect]
     Active Substance: OBINUTUZUMAB
     Indication: B-CELL LYMPHOMA
     Route: 042
     Dates: start: 20161102
  2. ARA-C [Concomitant]
     Active Substance: CYTARABINE
     Route: 065
     Dates: start: 20170118, end: 20170120
  3. BENDAMUSTINE [Concomitant]
     Active Substance: BENDAMUSTINE
     Indication: B-CELL LYMPHOMA

REACTIONS (5)
  - Pyrexia [Unknown]
  - Cytopenia [Unknown]
  - Pulmonary mycosis [Recovered/Resolved]
  - Rash [Unknown]
  - C-reactive protein increased [Unknown]

NARRATIVE: CASE EVENT DATE: 201701
